FAERS Safety Report 5239603-3 (Version None)
Quarter: 2007Q1

REPORT INFORMATION
  Report Type: 
  Country: None (occurrence: None)
  Receive Date: 20070216
  Receipt Date: 20070205
  Transmission Date: 20070707
  Serious: Yes (Other)
  Sender: FDA-Public Use
  Company Number: US-ROCHE-481426

PATIENT
  Age: 13 Year
  Sex: Male
  Weight: 72.6 kg

DRUGS (1)
  1. TAMIFLU [Suspect]
     Indication: DRUG USE FOR UNKNOWN INDICATION
     Route: 065
     Dates: start: 20070127, end: 20070131

REACTIONS (1)
  - LOSS OF CONSCIOUSNESS [None]
